FAERS Safety Report 23333436 (Version 1)
Quarter: 2023Q4

REPORT INFORMATION
  Report Type: Spontaneous
  Country: TW (occurrence: TW)
  Receive Date: 20231222
  Receipt Date: 20231222
  Transmission Date: 20240110
  Serious: Yes (Other)
  Sender: FDA-Public Use
  Company Number: TW-002147023-NVSC2023TW270453

PATIENT

DRUGS (1)
  1. NILOTINIB [Suspect]
     Active Substance: NILOTINIB
     Indication: Product used for unknown indication
     Dosage: 300 MG, BID
     Route: 065

REACTIONS (7)
  - Myxoedema [Unknown]
  - Hyperthyroidism [Unknown]
  - Pyrexia [Unknown]
  - Dysphonia [Unknown]
  - Rash [Unknown]
  - Diplopia [Unknown]
  - Arthralgia [Unknown]
